FAERS Safety Report 8415729 (Version 2)
Quarter: 2013Q1

REPORT INFORMATION
  Report Type: Spontaneous
  Country: US (occurrence: US)
  Receive Date: 20120218
  Receipt Date: 20130119
  Transmission Date: 20140127
  Serious: No
  Sender: FDA-Public Use
  Company Number: US-ALLERGAN-1112997US

PATIENT
  Age: 70 Year
  Sex: Female

DRUGS (2)
  1. BOTOX? [Suspect]
     Indication: FACIAL SPASM
     Dosage: 100 UNITS, SINGLE
     Route: 030
     Dates: start: 20110909, end: 20110909
  2. BENICAR [Concomitant]

REACTIONS (2)
  - Injection site bruising [Recovered/Resolved]
  - Eye swelling [Recovered/Resolved]
